FAERS Safety Report 9749368 (Version 3)
Quarter: 2014Q3

REPORT INFORMATION
  Report Type: Spontaneous
  Country: GB (occurrence: None)
  Receive Date: 20131209
  Receipt Date: 20140822
  Transmission Date: 20150326
  Serious: Yes (Other)
  Sender: FDA-Public Use
  Company Number: 2055332

PATIENT
  Age: 53 Year
  Sex: Male

DRUGS (3)
  1. PROCARBAZINE [Suspect]
     Active Substance: PROCARBAZINE
     Indication: GLIOMA
     Dosage: INTRAVENOUS (NOT OTHERWISE SPECIFIED)
     Route: 042
     Dates: start: 20130815
  2. LOMUSTINE. [Suspect]
     Active Substance: LOMUSTINE
     Indication: GLIOMA
     Dosage: INTRAVENOUS (NOT OTHERWISE SPECIFIED)
     Route: 042
     Dates: start: 20130815
  3. VINCRISTINE SULFATE. [Suspect]
     Active Substance: VINCRISTINE SULFATE
     Indication: GLIOMA
     Dosage: INTRAVENOUS (NOT OTHERWISE SPECIFIED)
     Route: 042
     Dates: start: 20130815

REACTIONS (6)
  - Jaundice [None]
  - Hypophagia [None]
  - Mobility decreased [None]
  - Fatigue [None]
  - Liver disorder [None]
  - Liver function test abnormal [None]

NARRATIVE: CASE EVENT DATE: 20130905
